FAERS Safety Report 16130879 (Version 1)
Quarter: 2019Q1

REPORT INFORMATION
  Report Type: Spontaneous
  Country: US (occurrence: US)
  Receive Date: 20190328
  Receipt Date: 20190328
  Transmission Date: 20190418
  Serious: No
  Sender: FDA-Public Use
  Company Number: US-BIOMARINAP-US-2019-122604

PATIENT
  Age: 2 Year
  Sex: Female

DRUGS (1)
  1. KUVAN [Suspect]
     Active Substance: SAPROPTERIN DIHYDROCHLORIDE
     Indication: PHENYLKETONURIA
     Dosage: 60 MILLIGRAM, QD
     Route: 048
     Dates: start: 20180529

REACTIONS (2)
  - Crying [Not Recovered/Not Resolved]
  - Emotional disorder [Not Recovered/Not Resolved]

NARRATIVE: CASE EVENT DATE: 201902
